FAERS Safety Report 9393521 (Version 3)
Quarter: 2013Q4

REPORT INFORMATION
  Report Type: Spontaneous
  Country: US (occurrence: US)
  Receive Date: 20130710
  Receipt Date: 20131115
  Transmission Date: 20140711
  Serious: Yes (Other)
  Sender: FDA-Public Use
  Company Number: US-ASTRAZENECA-2013SE50351

PATIENT
  Age: 74 Year
  Sex: Male
  Weight: 95.3 kg

DRUGS (14)
  1. BRILINTA [Suspect]
     Indication: STENT PLACEMENT
     Route: 048
     Dates: start: 201306, end: 201306
  2. CRESTOR [Suspect]
     Indication: BLOOD CHOLESTEROL ABNORMAL
     Route: 048
  3. CRESTOR [Suspect]
     Indication: CARDIAC DISORDER
     Route: 048
  4. CRESTOR [Suspect]
     Indication: BLOOD CHOLESTEROL ABNORMAL
     Route: 048
     Dates: start: 2003
  5. CRESTOR [Suspect]
     Indication: CARDIAC DISORDER
     Route: 048
     Dates: start: 2003
  6. CRESTOR [Suspect]
     Indication: BLOOD CHOLESTEROL ABNORMAL
     Route: 048
  7. CRESTOR [Suspect]
     Indication: CARDIAC DISORDER
     Route: 048
  8. ASPIRIN [Suspect]
     Route: 065
  9. PLAVIX [Suspect]
     Route: 065
     Dates: end: 201306
  10. PLAVIX [Suspect]
     Route: 065
     Dates: start: 201306
  11. PREDNISONE [Concomitant]
     Indication: ARTHROPATHY
     Route: 048
  12. UNSPECIFIED THYROID REPLACEMENT [Concomitant]
     Indication: RADIOTHERAPY
     Route: 048
  13. UNSPECIFED HEART MEDICATION [Concomitant]
     Indication: ANGINA PECTORIS
  14. ISOBRIDE [Concomitant]
     Indication: ANGINA PECTORIS

REACTIONS (11)
  - Suicidal ideation [Recovered/Resolved]
  - Angina pectoris [Recovered/Resolved]
  - Cardiac discomfort [Unknown]
  - Arteriosclerosis coronary artery [Unknown]
  - Chest pain [Unknown]
  - Muscular weakness [Recovered/Resolved]
  - Feeling abnormal [Recovered/Resolved]
  - Balance disorder [Unknown]
  - Dyspnoea [Recovered/Resolved]
  - Muscular weakness [Not Recovered/Not Resolved]
  - Intentional drug misuse [Unknown]
